FAERS Safety Report 6239327-X (Version None)
Quarter: 2009Q2

REPORT INFORMATION
  Report Type: 
  Country: None (occurrence: None)
  Receive Date: 20090622
  Receipt Date: 20090610
  Transmission Date: 20091009
  Serious: Yes (Hospitalization, Other)
  Sender: FDA-Public Use
  Company Number: US-PFIZER INC-2009167892

PATIENT
  Sex: Male
  Weight: 88.889 kg

DRUGS (11)
  1. DILANTIN-125 [Interacting]
     Indication: CONVULSION
     Dosage: 2X/DAY EVERY DAY
     Route: 048
     Dates: start: 20010101
  2. SEROQUEL [Interacting]
     Indication: PSYCHOTIC DISORDER
     Dosage: 2X/DAY EVERY DAY
     Route: 048
     Dates: start: 20080301
  3. RISPERIDONE [Suspect]
  4. PALIPERIDONE [Suspect]
  5. CITALOPRAM [Concomitant]
  6. CLONIDINE [Concomitant]
     Dosage: UNK
  7. AMBIEN [Concomitant]
     Dosage: UNK
  8. COGENTIN [Concomitant]
     Dosage: UNK
  9. LORAZEPAM [Concomitant]
     Dosage: UNK
  10. TOPAMAX [Concomitant]
     Dosage: UNK
  11. ZONISAMIDE [Concomitant]
     Dosage: UNK

REACTIONS (9)
  - DRUG INEFFECTIVE [None]
  - DRUG INTERACTION [None]
  - DRUG TOLERANCE [None]
  - EXTRAPYRAMIDAL DISORDER [None]
  - HALLUCINATION [None]
  - HEAD BANGING [None]
  - ILL-DEFINED DISORDER [None]
  - PSYCHOTIC DISORDER [None]
  - SUICIDAL IDEATION [None]
